FAERS Safety Report 23004726 (Version 2)
Quarter: 2023Q4

REPORT INFORMATION
  Report Type: Spontaneous
  Country: NL (occurrence: NL)
  Receive Date: 20230929
  Receipt Date: 20231012
  Transmission Date: 20240109
  Serious: Yes (Other)
  Sender: FDA-Public Use
  Company Number: None

PATIENT
  Age: 85 Year
  Sex: Female
  Weight: 59 kg

DRUGS (10)
  1. CIPROFLOXACIN [Suspect]
     Active Substance: CIPROFLOXACIN
     Indication: Cystitis
     Dosage: 2X1 TABLET, BRAND NAME NOT SPECIFIED
     Dates: start: 20230706, end: 20230713
  2. PANTOPRAZOLE [Concomitant]
     Active Substance: PANTOPRAZOLE
     Indication: Product used for unknown indication
     Dosage: BRAND NAME NOT SPECIFIED
  3. LIVSANE [Concomitant]
     Indication: Product used for unknown indication
  4. METFORMIN [Concomitant]
     Active Substance: METFORMIN HYDROCHLORIDE
     Indication: Product used for unknown indication
     Dosage: BRAND NAME NOT SPECIFIED
  5. SITAGLIPTIN [Concomitant]
     Active Substance: SITAGLIPTIN
     Indication: Product used for unknown indication
     Dosage: BRAND NAME NOT SPECIFIED
  6. FUROSEMIDE [Concomitant]
     Active Substance: FUROSEMIDE
     Indication: Product used for unknown indication
     Dosage: BRAND NAME NOT SPECIFIED
  7. MECLIZINE\PYRIDOXINE [Concomitant]
     Active Substance: MECLIZINE\PYRIDOXINE
     Indication: Product used for unknown indication
     Dosage: FORM STRENGTH : 12.5/25 MG (MILLIGRAM)
  8. METOPROLOL SUCCINATE [Concomitant]
     Active Substance: METOPROLOL SUCCINATE
     Indication: Product used for unknown indication
     Dosage: BRAND NAME NOT SPECIFIED
  9. APIXABAN [Concomitant]
     Active Substance: APIXABAN
     Indication: Product used for unknown indication
     Dosage: BRAND NAME NOT SPECIFIED
  10. GLICLAZIDE [Concomitant]
     Active Substance: GLICLAZIDE
     Indication: Product used for unknown indication
     Dosage: BRAND NAME NOT SPECIFIED

REACTIONS (4)
  - Depressed level of consciousness [Recovering/Resolving]
  - Abdominal pain lower [Recovering/Resolving]
  - Chorea [Recovering/Resolving]
  - Vomiting [Recovering/Resolving]
